FAERS Safety Report 17825515 (Version 1)
Quarter: 2020Q2

REPORT INFORMATION
  Report Type: Spontaneous
  Country: CN (occurrence: CN)
  Receive Date: 20200526
  Receipt Date: 20200526
  Transmission Date: 20200714
  Serious: Yes (Hospitalization, Other)
  Sender: FDA-Public Use
  Company Number: CN-ASTRAZENECA-2020SE63371

PATIENT
  Age: 67 Year
  Sex: Female

DRUGS (2)
  1. DRUGS FOR DIABETES MELLITUS [Concomitant]
     Indication: DIABETES MELLITUS
  2. IMFINZI [Suspect]
     Active Substance: DURVALUMAB
     Indication: BLADDER CANCER RECURRENT
     Route: 042
     Dates: start: 20200507

REACTIONS (3)
  - Diarrhoea [Recovered/Resolved]
  - Abdominal pain [Recovered/Resolved]
  - Pancreatitis acute [Unknown]

NARRATIVE: CASE EVENT DATE: 20200507
